FAERS Safety Report 16661663 (Version 1)
Quarter: 2019Q3

REPORT INFORMATION
  Report Type: Spontaneous
  Country: IT (occurrence: IT)
  Receive Date: 20190802
  Receipt Date: 20190802
  Transmission Date: 20191004
  Serious: Yes (Death, Other)
  Sender: FDA-Public Use
  Company Number: IT-PFIZER INC-2019327945

PATIENT
  Age: 55 Year
  Sex: Male
  Weight: 80 kg

DRUGS (6)
  1. HEPARIN SODIUM. [Suspect]
     Active Substance: HEPARIN SODIUM
     Dosage: 8 KIU, SINGLE
     Dates: start: 20190605, end: 20190605
  2. ATORVASTATIN [Concomitant]
     Active Substance: ATORVASTATIN
     Dosage: 80 MG, UNK
     Route: 048
     Dates: start: 20190605, end: 20190605
  3. PANTOPRAZOLE [Concomitant]
     Active Substance: PANTOPRAZOLE
     Dosage: 20 MG, UNK
     Route: 048
     Dates: start: 20190605, end: 20190605
  4. ACETYLSALICYLIC ACID [Interacting]
     Active Substance: ASPIRIN
     Dosage: 100 MG, SINGLE
     Route: 048
     Dates: start: 20190605, end: 20190605
  5. BRILIQUE [Interacting]
     Active Substance: TICAGRELOR
     Dosage: 180 MG, SINGLE
     Route: 048
     Dates: start: 20190605, end: 20190605
  6. AGGRASTAT [Interacting]
     Active Substance: TIROFIBAN HYDROCHLORIDE
     Dosage: UNK
     Route: 042
     Dates: start: 20190605, end: 20190606

REACTIONS (5)
  - Gastric haemorrhage [Fatal]
  - Drug interaction [Unknown]
  - Shock [Fatal]
  - Haematemesis [Fatal]
  - Acute pulmonary oedema [Fatal]

NARRATIVE: CASE EVENT DATE: 20190606
